FAERS Safety Report 9733496 (Version 1)
Quarter: 2013Q4

REPORT INFORMATION
  Report Type: Spontaneous
  Country: US (occurrence: None)
  Receive Date: 20131204
  Receipt Date: 20131204
  Transmission Date: 20140711
  Serious: Yes (Life-Threatening)
  Sender: FDA-Public Use
  Company Number: None

PATIENT
  Age: 51 Year
  Sex: Male
  Weight: 79 kg

DRUGS (1)
  1. WARFARIN [Suspect]
     Indication: CEREBROVASCULAR ACCIDENT
     Dosage: 1 PILL VARIES
     Route: 048

REACTIONS (4)
  - Respiratory failure [None]
  - International normalised ratio increased [None]
  - Post procedural complication [None]
  - Cerebral haemorrhage [None]
